FAERS Safety Report 8492593-2 (Version None)
Quarter: 2012Q3

REPORT INFORMATION
  Report Type: 
  Country: None (occurrence: None)
  Receive Date: 20120706
  Receipt Date: 20120625
  Transmission Date: 20120928
  Serious: Yes (Hospitalization, Other)
  Sender: FDA-Public Use
  Company Number: US-ELI_LILLY_AND_COMPANY-US201206000662

PATIENT
  Age: 58 Year
  Sex: Female
  Weight: 78.005 kg

DRUGS (8)
  1. TRIAMTEREN [Concomitant]
     Indication: HYPERTENSION
  2. HYDROCHLOROTHIAZIDE [Concomitant]
  3. TOLTERODINE TARTRATE [Concomitant]
     Dosage: UNK, QD
  4. ESTROGEN [Concomitant]
  5. CYMBALTA [Suspect]
     Indication: BACK PAIN
     Dosage: 60 MG, QD
     Route: 048
     Dates: start: 20120405
  6. VALTREX [Concomitant]
  7. ASPIRIN [Concomitant]
     Dosage: 81 MG, UNK
  8. NASONEX [Concomitant]

REACTIONS (4)
  - BLOOD POTASSIUM DECREASED [None]
  - PALPITATIONS [None]
  - ARRHYTHMIA [None]
  - OFF LABEL USE [None]
